FAERS Safety Report 14816766 (Version 1)
Quarter: 2018Q2

REPORT INFORMATION
  Report Type: Spontaneous
  Country: US (occurrence: US)
  Receive Date: 20180426
  Receipt Date: 20180426
  Transmission Date: 20180711
  Serious: Yes (Other)
  Sender: FDA-Public Use
  Company Number: US-JNJFOC-20180427472

PATIENT
  Sex: Female
  Weight: 107.05 kg

DRUGS (4)
  1. CALCIUM CARBONATE W/VITAMIN D      /00944201/ [Concomitant]
     Route: 065
  2. STELARA [Suspect]
     Active Substance: USTEKINUMAB
     Indication: PSORIATIC ARTHROPATHY
     Route: 058
  3. BETAMETHASONE DIPROPRIONATE [Concomitant]
     Active Substance: BETAMETHASONE DIPROPIONATE
     Route: 065
  4. VITAMIN D3 [Concomitant]
     Active Substance: CHOLECALCIFEROL
     Route: 065

REACTIONS (4)
  - Psoriasis [Unknown]
  - Urticaria [Unknown]
  - Sinusitis [Recovering/Resolving]
  - Respiratory tract infection [Recovering/Resolving]
